FAERS Safety Report 19684708 (Version 1)
Quarter: 2021Q3

REPORT INFORMATION
  Report Type: Spontaneous
  Country: IT (occurrence: IT)
  Receive Date: 20210811
  Receipt Date: 20210811
  Transmission Date: 20211014
  Serious: Yes (Other)
  Sender: FDA-Public Use
  Company Number: IT-MYLANLABS-2021M1049223

PATIENT
  Age: 69 Year
  Sex: Male

DRUGS (1)
  1. LAMIVUDINA MYLAN PHARMA [Suspect]
     Active Substance: LAMIVUDINE
     Indication: LIVER TRANSPLANT
     Dosage: 100 MILLIGRAM, QD
     Route: 048
     Dates: start: 20200315, end: 20210201

REACTIONS (5)
  - Diarrhoea [Recovered/Resolved]
  - Vomiting [Recovered/Resolved]
  - Myalgia [Recovered/Resolved]
  - Nausea [Recovered/Resolved]
  - Off label use [Recovered/Resolved]

NARRATIVE: CASE EVENT DATE: 20210128
